FAERS Safety Report 8984119 (Version 1)
Quarter: 2012Q4

REPORT INFORMATION
  Report Type: Spontaneous
  Country: GB (occurrence: None)
  Receive Date: 20121212
  Receipt Date: 20121212
  Transmission Date: 20130627
  Serious: Yes (Other)
  Sender: FDA-Public Use
  Company Number: TUK2012A00306

PATIENT
  Age: 67 Year
  Sex: Male

DRUGS (8)
  1. PIOGLITAZONE HYDROCHLORIDE [Suspect]
     Indication: DRUG USE FOR UNKNOWN INDICATION
     Route: 048
     Dates: start: 20100210, end: 20121001
  2. AMLODIPINE (AMLODIPINE) [Concomitant]
  3. LATANOPROST (LATANOPROST) (NONE) [Concomitant]
  4. METFORMIN (METFORMIN) [Concomitant]
  5. SIMVASTATIN (SIMVASTATIN) [Concomitant]
  6. TEOPTIC (CARTEOLOL HYDROCHLORIDE) [Concomitant]
  7. TOLBUTAMIDE (TOLBUTAMIDE) [Concomitant]
  8. ACE INHIBITOR (ACE INHIBITORS) [Concomitant]

REACTIONS (3)
  - Left ventricular dysfunction [None]
  - Orthopnoea [None]
  - Cardiac failure [None]
